FAERS Safety Report 7649967-9 (Version None)
Quarter: 2011Q3

REPORT INFORMATION
  Report Type: 
  Country: None (occurrence: None)
  Receive Date: 20110802
  Receipt Date: 20110727
  Transmission Date: 20111222
  Serious: Yes (Other)
  Sender: FDA-Public Use
  Company Number: FR-BRISTOL-MYERS SQUIBB COMPANY-15934334

PATIENT
  Age: 50 Year
  Sex: Female

DRUGS (4)
  1. TRUVADA [Suspect]
     Indication: HIV INFECTION
     Dates: start: 20060101
  2. CORGARD [Concomitant]
     Indication: HYPERTENSION
     Dates: start: 20080101
  3. REYATAZ [Suspect]
     Indication: HIV INFECTION
     Dates: start: 20060101
  4. RITONAVIR [Suspect]
     Indication: HIV INFECTION
     Dates: start: 20060101

REACTIONS (1)
  - HYPERTENSION [None]
